FAERS Safety Report 7523267-X (Version None)
Quarter: 2011Q2

REPORT INFORMATION
  Report Type: 
  Country: None (occurrence: None)
  Receive Date: 20110603
  Receipt Date: 20110519
  Transmission Date: 20111010
  Serious: Yes (Hospitalization)
  Sender: FDA-Public Use
  Company Number: A0815878A

PATIENT
  Age: 65 Year
  Sex: Male
  Weight: 95.5 kg

DRUGS (7)
  1. ZETIA [Concomitant]
  2. XANAX [Concomitant]
  3. TOPROL-XL [Concomitant]
  4. AVANDIA [Suspect]
     Dosage: 4MG PER DAY
     Route: 048
     Dates: end: 20070618
  5. LISINOPRIL [Concomitant]
  6. TRAZODONE HCL [Concomitant]
  7. GLUCOPHAGE [Concomitant]
     Dates: start: 20050606

REACTIONS (2)
  - MYOCARDIAL INFARCTION [None]
  - TRANSIENT ISCHAEMIC ATTACK [None]
